FAERS Safety Report 6142344-1 (Version None)
Quarter: 2009Q2

REPORT INFORMATION
  Report Type: 
  Country: None (occurrence: None)
  Receive Date: 20090403
  Receipt Date: 20090327
  Transmission Date: 20091009
  Serious: Yes (Other)
  Sender: FDA-Public Use
  Company Number: CN-JNJFOC-20090306510

PATIENT
  Age: 3 Year
  Sex: Female
  Weight: 15 kg

DRUGS (2)
  1. CHILDREN'S MOTRIN [Suspect]
     Route: 048
  2. CHILDREN'S MOTRIN [Suspect]
     Indication: PYREXIA
     Route: 048

REACTIONS (2)
  - ACCIDENTAL DRUG INTAKE BY CHILD [None]
  - ACCIDENTAL OVERDOSE [None]
